FAERS Safety Report 5040674-8 (Version None)
Quarter: 2006Q2

REPORT INFORMATION
  Report Type: 
  Country: None (occurrence: None)
  Receive Date: 20060629
  Receipt Date: 20060629
  Transmission Date: 20061013
  Serious: Yes (Hospitalization)
  Sender: FDA-Public Use
  Company Number: None

PATIENT
  Age: 73 Year
  Sex: Male
  Weight: 71.7 kg

DRUGS (1)
  1. CIPRO [Suspect]
     Indication: URINARY TRACT INFECTION
     Dosage: BID
     Dates: start: 20060427, end: 20060505

REACTIONS (5)
  - BLOOD PRESSURE ORTHOSTATIC ABNORMAL [None]
  - DIARRHOEA [None]
  - FALL [None]
  - HYPOTENSION [None]
  - LACERATION [None]
